FAERS Safety Report 14201831 (Version 1)
Quarter: 2017Q4

REPORT INFORMATION
  Report Type: Spontaneous
  Country: BR (occurrence: BR)
  Receive Date: 20171117
  Receipt Date: 20171117
  Transmission Date: 20180321
  Serious: Yes (Death, Hospitalization)
  Sender: FDA-Public Use
  Company Number: PHHY2017BR170077

PATIENT
  Age: 55 Year
  Sex: Male

DRUGS (1)
  1. ENTRESTO [Suspect]
     Active Substance: SACUBITRIL\VALSARTAN
     Indication: HEPATIC FAILURE
     Dosage: 100 MG, UNK
     Route: 065

REACTIONS (3)
  - Product use in unapproved indication [Unknown]
  - Liver disorder [Unknown]
  - Death [Fatal]
